FAERS Safety Report 4788880-1 (Version None)
Quarter: 2005Q4

REPORT INFORMATION
  Report Type: 
  Country: None (occurrence: None)
  Receive Date: 20051004
  Receipt Date: 20050921
  Transmission Date: 20060501
  Serious: Yes (Death)
  Sender: FDA-Public Use
  Company Number: 2005119730

PATIENT
  Age: 70 Year
  Sex: Female
  Weight: 52 kg

DRUGS (4)
  1. VFEND [Suspect]
     Indication: BRONCHOPULMONARY ASPERGILLOSIS
     Dosage: 400 MG (200 MG, 2 IN 1 D), INTRAVENOUS
     Route: 042
     Dates: start: 20050816, end: 20050820
  2. CARBENIN (BETAMIPRON, PANIPENEM) [Concomitant]
  3. MICAFUNGIN (MICAFUNGIN) [Concomitant]
  4. INSULIN [Concomitant]

REACTIONS (20)
  - BLOOD PRESSURE DECREASED [None]
  - CACHEXIA [None]
  - CARDIAC FAILURE [None]
  - COLOUR BLINDNESS [None]
  - ERYTHEMA [None]
  - GENERALISED OEDEMA [None]
  - HAEMOPTYSIS [None]
  - HYPERGLYCAEMIA [None]
  - IMMOBILE [None]
  - OXYGEN SATURATION DECREASED [None]
  - PNEUMONIA STAPHYLOCOCCAL [None]
  - PYREXIA [None]
  - RESPIRATORY FAILURE [None]
  - SEPSIS [None]
  - SEPTIC SHOCK [None]
  - SOMNOLENCE [None]
  - SWELLING FACE [None]
  - URINE OUTPUT DECREASED [None]
  - VISION BLURRED [None]
  - VISUAL DISTURBANCE [None]
